FAERS Safety Report 7364616-5 (Version None)
Quarter: 2011Q1

REPORT INFORMATION
  Report Type: 
  Country: None (occurrence: None)
  Receive Date: 20110315
  Receipt Date: 20110315
  Transmission Date: 20110831
  Serious: Yes (Hospitalization)
  Sender: FDA-Public Use
  Company Number: None

PATIENT
  Age: 66 Year
  Sex: Male
  Weight: 91 kg

DRUGS (2)
  1. CIPROFLOXACIN [Suspect]
     Indication: PNEUMONIA
     Dosage: 500 MG BID PO
     Route: 048
     Dates: start: 20110121, end: 20110213
  2. WARFARIN [Suspect]
     Indication: ATRIAL FIBRILLATION
     Dosage: 5 MG EVERY DAY PO
     Route: 048
     Dates: start: 20100601, end: 20110119

REACTIONS (4)
  - HAEMOPTYSIS [None]
  - PYREXIA [None]
  - RESPIRATORY TRACT IRRITATION [None]
  - INTERNATIONAL NORMALISED RATIO INCREASED [None]
